FAERS Safety Report 6290289-9 (Version None)
Quarter: 2009Q3

REPORT INFORMATION
  Report Type: 
  Country: None (occurrence: None)
  Receive Date: 20090730
  Receipt Date: 20090210
  Transmission Date: 20100115
  Serious: Yes (Hospitalization)
  Sender: FDA-Public Use
  Company Number: US-BRISTOL-MYERS SQUIBB COMPANY-14500557

PATIENT
  Age: 48 Year
  Sex: Male

DRUGS (1)
  1. COUMADIN [Suspect]
     Indication: COAGULOPATHY

REACTIONS (1)
  - THROMBOSIS [None]
